FAERS Safety Report 7122307-X (Version None)
Quarter: 2010Q4

REPORT INFORMATION
  Report Type: 
  Country: None (occurrence: None)
  Receive Date: 20101112
  Receipt Date: 20101104
  Transmission Date: 20110411
  Serious: Yes (Other)
  Sender: FDA-Public Use
  Company Number: 2010MA004347

PATIENT
  Age: 39 Year
  Sex: Female

DRUGS (3)
  1. SERTRALINE HYDROCHLORIDE [Suspect]
     Indication: DEPRESSION
     Dosage: 200 MG
  2. ZOPICLONE [Concomitant]
  3. PREV MEDS [Concomitant]

REACTIONS (4)
  - FAMILY STRESS [None]
  - HYPOMANIA [None]
  - INCORRECT DOSE ADMINISTERED [None]
  - SICK RELATIVE [None]
